FAERS Safety Report 23301942 (Version 1)
Quarter: 2023Q4

REPORT INFORMATION
  Report Type: Spontaneous
  Country: BE (occurrence: BE)
  Receive Date: 20231215
  Receipt Date: 20231215
  Transmission Date: 20240109
  Serious: Yes (Life-Threatening, Other)
  Sender: FDA-Public Use
  Company Number: None

PATIENT
  Age: 57 Year
  Sex: Female
  Weight: 80 kg

DRUGS (7)
  1. LIDOCAINE [Suspect]
     Active Substance: LIDOCAINE
     Indication: Analgesic therapy
     Dosage: DOSE DESCRIPTION : 80 MG
     Route: 042
     Dates: start: 20230420
  2. DEXAMETHASONE [Suspect]
     Active Substance: DEXAMETHASONE
     Indication: Vomiting
     Dosage: DOSE DESCRIPTION : 5 MG
     Route: 042
     Dates: start: 20230420
  3. SUFENTANIL [Suspect]
     Active Substance: SUFENTANIL
     Indication: Analgesic therapy
     Dosage: DOSE DESCRIPTION : 15 UG
     Route: 042
     Dates: start: 20230420
  4. PROPOFOL [Suspect]
     Active Substance: PROPOFOL
     Indication: Anaesthesia
     Dosage: DOSE DESCRIPTION : 300 MG
     Route: 065
     Dates: start: 20230420
  5. ROCURONIUM BROMIDE [Suspect]
     Active Substance: ROCURONIUM BROMIDE
     Indication: Neuromuscular blocking therapy
     Dosage: DOSE DESCRIPTION : 30 MG
     Route: 042
     Dates: start: 20230420
  6. CARBOMER [Suspect]
     Active Substance: CARBOMER
     Indication: Product used for unknown indication
     Dosage: DOSE DESCRIPTION : UNK
     Route: 065
     Dates: start: 20230420
  7. WATER [Suspect]
     Active Substance: WATER
     Indication: Vomiting
     Dosage: 5 MG
     Dates: start: 20230420

REACTIONS (5)
  - Anaphylactic shock [Unknown]
  - Oxygen saturation decreased [Unknown]
  - Blood pressure decreased [Unknown]
  - Capnogram abnormal [Unknown]
  - Rash erythematous [Unknown]
